FAERS Safety Report 5736599-2 (Version None)
Quarter: 2008Q2

REPORT INFORMATION
  Report Type: 
  Country: None (occurrence: None)
  Receive Date: 20080513
  Receipt Date: 20080430
  Transmission Date: 20081010
  Serious: Yes (Other)
  Sender: FDA-Public Use
  Company Number: US-ASTRAZENECA-2007UW28594

PATIENT
  Age: 86 Year
  Sex: Female
  Weight: 108.9 kg

DRUGS (6)
  1. ARIMIDEX [Suspect]
     Indication: BREAST CANCER STAGE IV
     Route: 048
  2. SYNTHROID [Concomitant]
  3. COMBIGAN [Concomitant]
  4. OMEPRAZOLE [Concomitant]
  5. ZOMETA INJECTION [Concomitant]
  6. ALEVE [Concomitant]

REACTIONS (3)
  - ARTHRALGIA [None]
  - GAIT DISTURBANCE [None]
  - HYPOAESTHESIA [None]
